FAERS Safety Report 7406925-7 (Version None)
Quarter: 2011Q2

REPORT INFORMATION
  Report Type: 
  Country: None (occurrence: None)
  Receive Date: 20110411
  Receipt Date: 20110401
  Transmission Date: 20111010
  Serious: Yes (Hospitalization, Other)
  Sender: FDA-Public Use
  Company Number: US-BAXTER-2011BH010295

PATIENT
  Age: 65 Year
  Sex: Male

DRUGS (2)
  1. VINORELBINE TARTRATE [Suspect]
     Indication: METASTATIC NEOPLASM
     Route: 042
  2. VINORELBINE TARTRATE [Suspect]
     Indication: OFF LABEL USE
     Route: 042

REACTIONS (2)
  - BRONCHOSPASM [None]
  - ACUTE CORONARY SYNDROME [None]
